FAERS Safety Report 25061441 (Version 1)
Quarter: 2025Q1

REPORT INFORMATION
  Report Type: Spontaneous
  Country: CN (occurrence: CN)
  Receive Date: 20250311
  Receipt Date: 20250311
  Transmission Date: 20250409
  Serious: Yes (Hospitalization)
  Sender: NOVO NORDISK
  Company Number: CN-NOVOPROD-1382532

PATIENT
  Age: 63 Year
  Sex: Female
  Weight: 63 kg

DRUGS (9)
  1. XULTOPHY 100/3.6 [Suspect]
     Active Substance: INSULIN DEGLUDEC\LIRAGLUTIDE
     Indication: Type 2 diabetes mellitus
     Dates: start: 202411
  2. SPIRONOLACTONE [Concomitant]
     Active Substance: SPIRONOLACTONE
     Indication: Type 2 diabetes mellitus
  3. ASPIRIN [Concomitant]
     Active Substance: ASPIRIN
     Indication: Type 2 diabetes mellitus
  4. ATORVASTATIN CALCIUM [Concomitant]
     Active Substance: ATORVASTATIN CALCIUM
     Indication: Type 2 diabetes mellitus
  5. ZOPICLONE [Concomitant]
     Active Substance: ZOPICLONE
     Indication: Hypnotherapy
  6. ESZOPICLONE [Concomitant]
     Active Substance: ESZOPICLONE
     Indication: Hypnotherapy
  7. NATEGLINIDE [Concomitant]
     Active Substance: NATEGLINIDE
  8. DAPAGLIFLOZIN [Concomitant]
     Active Substance: DAPAGLIFLOZIN
  9. CLONAZEPAM [Concomitant]
     Active Substance: CLONAZEPAM
     Indication: Hypnotherapy

REACTIONS (3)
  - Gastrointestinal polyp [Unknown]
  - Insomnia [Unknown]
  - Drug interaction [Unknown]
